FAERS Safety Report 8390503-X (Version None)
Quarter: 2012Q2

REPORT INFORMATION
  Report Type: 
  Country: None (occurrence: None)
  Receive Date: 20120529
  Receipt Date: 20120514
  Transmission Date: 20120825
  Serious: Yes (Hospitalization, Other)
  Sender: FDA-Public Use
  Company Number: US-JNJFOC-20120514572

PATIENT
  Age: 61 Year
  Sex: Female
  Weight: 122.47 kg

DRUGS (5)
  1. TOPAMAX [Suspect]
     Indication: EPILEPSY
     Route: 065
  2. MYSOLINE [Suspect]
     Indication: EPILEPSY
     Dosage: 500 MG IN THE MORNING AND 250 MG AT NIGHT
     Route: 065
  3. DILANTIN [Suspect]
     Dosage: 300 MG IN THE MORNING AND 200 MG AT NIGHT
     Route: 048
     Dates: start: 19750101
  4. DILANTIN [Suspect]
     Indication: EPILEPSY
     Route: 048
  5. DILANTIN [Suspect]
     Dosage: 250 MG IN THE MORNING AND 300 MG AT NIGHT
     Route: 048
     Dates: end: 20110101

REACTIONS (10)
  - MACULAR DEGENERATION [None]
  - POLYARTHRITIS [None]
  - FEMUR FRACTURE [None]
  - NEUROPATHY PERIPHERAL [None]
  - OSTEOPOROSIS [None]
  - ABDOMINAL PAIN UPPER [None]
  - TYPE 2 DIABETES MELLITUS [None]
  - FALL [None]
  - SPINAL DEFORMITY [None]
  - ABASIA [None]
